FAERS Safety Report 6945857-5 (Version None)
Quarter: 2010Q3

REPORT INFORMATION
  Report Type: 
  Country: None (occurrence: None)
  Receive Date: 20100827
  Receipt Date: 20100818
  Transmission Date: 20110219
  Serious: Yes (Other)
  Sender: FDA-Public Use
  Company Number: AR-AMGEN-QUU434053

PATIENT
  Sex: Female
  Weight: 67 kg

DRUGS (1)
  1. ENBREL [Suspect]
     Indication: RHEUMATOID ARTHRITIS
     Route: 058
     Dates: start: 20090602, end: 20100818

REACTIONS (5)
  - CONJUNCTIVITIS [None]
  - EFFUSION [None]
  - FALL [None]
  - HEAD INJURY [None]
  - ULCER [None]
